FAERS Safety Report 13354761 (Version 10)
Quarter: 2017Q4

REPORT INFORMATION
  Report Type: Spontaneous
  Country: US (occurrence: US)
  Receive Date: 20170321
  Receipt Date: 20171129
  Transmission Date: 20180320
  Serious: Yes (Congenital Anomaly, Other)
  Sender: FDA-Public Use
  Company Number: PHEH2017US008070

PATIENT
  Sex: Female

DRUGS (2)
  1. ONDANSETRON AUROBINDO [Suspect]
     Active Substance: ONDANSETRON HYDROCHLORIDE
     Indication: FOETAL EXPOSURE DURING PREGNANCY
     Dosage: MOTHER^S DOSE: 4 MG, UNK
     Route: 064
  2. ZOFRAN [Suspect]
     Active Substance: ONDANSETRON HYDROCHLORIDE
     Indication: FOETAL EXPOSURE DURING PREGNANCY
     Route: 064

REACTIONS (20)
  - Left ventricular enlargement [Unknown]
  - Muscular weakness [Unknown]
  - Atrial septal defect [Unknown]
  - Heart disease congenital [Unknown]
  - Anaemia [Unknown]
  - Premature baby [Unknown]
  - Ventricular septal defect [Unknown]
  - Patent ductus arteriosus [Unknown]
  - Left-to-right cardiac shunt [Unknown]
  - Feeding disorder [Unknown]
  - Asthenia [Unknown]
  - Pulmonary hypertension [Unknown]
  - Necrotising enterocolitis neonatal [Unknown]
  - Foetal exposure during pregnancy [Unknown]
  - Cardiac murmur [Unknown]
  - Pulmonary arterial pressure increased [Unknown]
  - Mobility decreased [Unknown]
  - Trisomy 21 [Unknown]
  - Left atrial enlargement [Unknown]
  - Tricuspid valve incompetence [Unknown]
